FAERS Safety Report 11203204 (Version 1)
Quarter: 2015Q2

REPORT INFORMATION
  Report Type: Spontaneous
  Country: US (occurrence: US)
  Receive Date: 20150619
  Receipt Date: 20150619
  Transmission Date: 20150821
  Serious: No
  Sender: FDA-Public Use
  Company Number: US-PFIZER INC-2015205021

PATIENT
  Age: 14 Year
  Sex: Male
  Weight: 39 kg

DRUGS (3)
  1. INTUNIV [Concomitant]
     Active Substance: GUANFACINE HYDROCHLORIDE
     Dosage: 2 MG, DAILY
  2. ZOLOFT [Suspect]
     Active Substance: SERTRALINE HYDROCHLORIDE
     Indication: SOCIAL PHOBIA
     Dosage: UNK
     Dates: start: 20150530
  3. VYVANSE [Concomitant]
     Active Substance: LISDEXAMFETAMINE DIMESYLATE
     Dosage: 40 MG, 1X/DAY (IN THE MORNING)

REACTIONS (6)
  - Anger [Unknown]
  - Fatigue [Unknown]
  - Hostility [Unknown]
  - Lethargy [Unknown]
  - Aggression [Unknown]
  - Abnormal behaviour [Unknown]
